FAERS Safety Report 16028793 (Version 1)
Quarter: 2019Q1

REPORT INFORMATION
  Report Type: Spontaneous
  Country: US (occurrence: US)
  Receive Date: 20190301
  Receipt Date: 20190301
  Transmission Date: 20190418
  Serious: No
  Sender: FDA-Public Use
  Company Number: None

PATIENT
  Age: 23 Month
  Sex: Male
  Weight: 13.5 kg

DRUGS (1)
  1. AZITHROMYCIN ANHYDROUS. [Suspect]
     Active Substance: AZITHROMYCIN ANHYDROUS
     Indication: EAR INFECTION
     Dosage: ?          QUANTITY:15 ML;?
     Route: 048
     Dates: start: 20190228, end: 20190301

REACTIONS (1)
  - Drug eruption [None]

NARRATIVE: CASE EVENT DATE: 20190301
